FAERS Safety Report 8119791-1 (Version None)
Quarter: 2012Q1

REPORT INFORMATION
  Report Type: 
  Country: None (occurrence: None)
  Receive Date: 20120206
  Receipt Date: 20120206
  Transmission Date: 20120608
  Serious: Yes (Other)
  Sender: FDA-Public Use
  Company Number: None

PATIENT
  Age: 68 Year
  Sex: Male
  Weight: 91.8 kg

DRUGS (1)
  1. ZOSTAVAX INJ MERCK SHAR [Suspect]
     Indication: IMMUNISATION
     Dates: start: 20111017

REACTIONS (2)
  - VIITH NERVE PARALYSIS [None]
  - IMMUNE SYSTEM DISORDER [None]
